FAERS Safety Report 19015089 (Version 1)
Quarter: 2021Q1

REPORT INFORMATION
  Report Type: Spontaneous
  Country: US (occurrence: US)
  Receive Date: 20210317
  Receipt Date: 20210317
  Transmission Date: 20210420
  Serious: Yes (Other)
  Sender: FDA-Public Use
  Company Number: US-SUN PHARMACEUTICAL INDUSTRIES LTD-2021R1-285518

PATIENT
  Age: 25 Year
  Sex: Female

DRUGS (6)
  1. CYCLOSPORINE. [Suspect]
     Active Substance: CYCLOSPORINE
     Indication: PROTEINURIA
     Dosage: 50 MILLIGRAM, BID
     Route: 065
  2. PREDNISONE. [Suspect]
     Active Substance: PREDNISONE
     Indication: SWELLING
  3. CYCLOSPORINE. [Suspect]
     Active Substance: CYCLOSPORINE
     Indication: SWELLING
  4. LISINOPRIL. [Suspect]
     Active Substance: LISINOPRIL
     Indication: SWELLING
  5. PREDNISONE. [Suspect]
     Active Substance: PREDNISONE
     Indication: PROTEINURIA
     Dosage: 15 MILLIGRAM, DAILY
     Route: 048
  6. LISINOPRIL. [Suspect]
     Active Substance: LISINOPRIL
     Indication: PROTEINURIA
     Dosage: 15 MILLIGRAM, DAILY
     Route: 065

REACTIONS (6)
  - Menstrual disorder [Unknown]
  - Acne [Unknown]
  - Blood glucose increased [Unknown]
  - Central obesity [Unknown]
  - Affect lability [Unknown]
  - Blood pressure increased [Unknown]
